FAERS Safety Report 6966826-5 (Version None)
Quarter: 2010Q3

REPORT INFORMATION
  Report Type: 
  Country: None (occurrence: None)
  Receive Date: 20100906
  Receipt Date: 20100824
  Transmission Date: 20110219
  Serious: Yes (Hospitalization)
  Sender: FDA-Public Use
  Company Number: PHHY2010US55688

PATIENT
  Sex: Male

DRUGS (2)
  1. EXJADE [Suspect]
     Indication: HAEMATOPOIETIC NEOPLASM
     Dosage: 125 MG, QD
     Route: 048
     Dates: start: 20081020
  2. EXJADE [Suspect]
     Indication: LYMPHATIC SYSTEM NEOPLASM

REACTIONS (1)
  - MALAISE [None]
